FAERS Safety Report 11389537 (Version 1)
Quarter: 2015Q3

REPORT INFORMATION
  Report Type: Spontaneous
  Country: US (occurrence: US)
  Receive Date: 20150817
  Receipt Date: 20150817
  Transmission Date: 20151125
  Serious: Yes (Death, Other)
  Sender: FDA-Public Use
  Company Number: PHHY2015US095405

PATIENT
  Age: 85 Year
  Sex: Male

DRUGS (1)
  1. HEPARIN [Suspect]
     Active Substance: HEPARIN SODIUM
     Indication: CAROTID ARTERY OCCLUSION
     Route: 065

REACTIONS (7)
  - Decerebrate posture [Unknown]
  - Headache [Fatal]
  - Brain herniation [Unknown]
  - Subdural haematoma [Fatal]
  - Mental status changes [Fatal]
  - Pupil fixed [Unknown]
  - Mydriasis [Unknown]
